FAERS Safety Report 5447576-3 (Version None)
Quarter: 2007Q3

REPORT INFORMATION
  Report Type: 
  Country: None (occurrence: None)
  Receive Date: 20070905
  Receipt Date: 20070822
  Transmission Date: 20080115
  Serious: Yes (Death)
  Sender: FDA-Public Use
  Company Number: 2007P1000553

PATIENT
  Age: 10 Year
  Sex: Male

DRUGS (1)
  1. BUSULFAN [Suspect]
     Indication: STEM CELL TRANSPLANT
     Dosage: 0.8 MG/KG;1X;
     Dates: start: 20070416, end: 20070421

REACTIONS (3)
  - MULTI-ORGAN FAILURE [None]
  - PERFORMANCE STATUS DECREASED [None]
  - VENOOCCLUSIVE LIVER DISEASE [None]
